FAERS Safety Report 6936209-2 (Version None)
Quarter: 2010Q3

REPORT INFORMATION
  Report Type: 
  Country: None (occurrence: None)
  Receive Date: 20100823
  Receipt Date: 20100813
  Transmission Date: 20110219
  Serious: Yes (Death, Hospitalization)
  Sender: FDA-Public Use
  Company Number: CZ-PFIZER INC-2009160337

PATIENT
  Age: 33 Year
  Sex: Male
  Weight: 92 kg

DRUGS (6)
  1. SUNITINIB MALATE [Suspect]
     Indication: NON-SMALL CELL LUNG CANCER
     Dosage: 37.5 MG, 1X/DAY
     Route: 048
     Dates: start: 20090114, end: 20090125
  2. ERLOTINIB HYDROCHLORIDE [Suspect]
     Indication: NON-SMALL CELL LUNG CANCER
     Dosage: 150 MG, 1X/DAY
     Route: 048
     Dates: start: 20090114, end: 20090125
  3. DURAGESIC-100 [Concomitant]
     Indication: PAIN
     Dosage: 25 UG, ONCE A THREE DAYS
     Route: 062
     Dates: start: 20090112
  4. NIMESULIDE [Concomitant]
     Indication: PAIN
     Dosage: 100 MG, 2X/DAY
     Route: 048
     Dates: start: 20090105, end: 20090125
  5. CITALOPRAM [Concomitant]
     Indication: DEPRESSION
     Dosage: 10 MG, 1X/DAY
     Route: 048
     Dates: start: 20090114, end: 20090125
  6. FRAXIPARINE [Concomitant]
     Indication: PROPHYLAXIS
     Dosage: 0.6 ML, 2X/DAY
     Route: 058
     Dates: start: 20080507, end: 20090124

REACTIONS (2)
  - HAEMOPTYSIS [None]
  - LOSS OF CONSCIOUSNESS [None]
